FAERS Safety Report 5801948-3 (Version None)
Quarter: 2008Q3

REPORT INFORMATION
  Report Type: 
  Country: None (occurrence: None)
  Receive Date: 20080702
  Receipt Date: 20080620
  Transmission Date: 20090109
  Serious: Yes (Hospitalization)
  Sender: FDA-Public Use
  Company Number: 8030746

PATIENT
  Age: 58 Year
  Sex: Female

DRUGS (3)
  1. KEPPRA [Suspect]
     Indication: EPILEPSY
     Dates: start: 20080201
  2. TRILEPTAL [Concomitant]
  3. FRISIUM [Concomitant]

REACTIONS (3)
  - COLITIS ULCERATIVE [None]
  - DRUG TOXICITY [None]
  - URINARY TRACT INFECTION [None]
